FAERS Safety Report 8414663-7 (Version None)
Quarter: 2012Q2

REPORT INFORMATION
  Report Type: 
  Country: None (occurrence: None)
  Receive Date: 20120605
  Receipt Date: 20120521
  Transmission Date: 20120825
  Serious: Yes (Death)
  Sender: FDA-Public Use
  Company Number: CH-WATSON-2012-09387

PATIENT
  Age: 61 Year
  Sex: Female

DRUGS (3)
  1. CYCLOSPORINE [Suspect]
     Indication: LUNG TRANSPLANT
     Dosage: TARGET C0/C2 LEVEL OF 100/700UG/L
     Route: 065
  2. MYCOPHENOLATE MOFETIL [Suspect]
     Indication: LUNG TRANSPLANT
     Dosage: 2 X 1G
     Route: 065
  3. PREDNISONE TAB [Suspect]
     Indication: LUNG TRANSPLANT
     Dosage: 7.5 MG, UNKNOWN
     Route: 065

REACTIONS (1)
  - NON-SMALL CELL LUNG CANCER [None]
